FAERS Safety Report 5479475-5 (Version None)
Quarter: 2007Q4

REPORT INFORMATION
  Report Type: 
  Country: None (occurrence: None)
  Receive Date: 20071008
  Receipt Date: 20070928
  Transmission Date: 20080405
  Serious: Yes (Other)
  Sender: FDA-Public Use
  Company Number: GB-ASTRAZENECA-2007GB02023

PATIENT
  Age: 82 Year
  Sex: Female

DRUGS (9)
  1. LIDOCAINE [Suspect]
     Indication: ANAESTHESIA
     Route: 065
     Dates: start: 20070502, end: 20070502
  2. ADRENALINE [Concomitant]
     Indication: EYE IRRIGATION
     Dates: start: 20070502
  3. BETAMETHASONE [Concomitant]
     Indication: POSTOPERATIVE CARE
     Route: 031
     Dates: start: 20070502
  4. CYCLOPENTOLATE HCL [Concomitant]
     Indication: PREOPERATIVE CARE
     Route: 031
     Dates: start: 20070502, end: 20070502
  5. FLURBIPROFEN SODIUM [Concomitant]
     Indication: PREOPERATIVE CARE
     Route: 031
     Dates: start: 20070502, end: 20070502
  6. NEOMYCIN [Concomitant]
     Indication: POSTOPERATIVE CARE
     Route: 031
     Dates: start: 20070502
  7. PHENYLEPHRINE [Concomitant]
     Indication: PREOPERATIVE CARE
     Route: 031
     Dates: start: 20070502, end: 20070502
  8. POVIDONE IODINE [Concomitant]
     Indication: PREOPERATIVE CARE
     Route: 031
     Dates: start: 20070502, end: 20070502
  9. VANCOMYCIN [Concomitant]
     Indication: EYE IRRIGATION
     Dates: start: 20070502

REACTIONS (1)
  - TOXIC ANTERIOR SEGMENT SYNDROME [None]
